FAERS Safety Report 6512223-6 (Version None)
Quarter: 2009Q4

REPORT INFORMATION
  Report Type: 
  Country: None (occurrence: None)
  Receive Date: 20091222
  Receipt Date: 20090528
  Transmission Date: 20100525
  Serious: No
  Sender: FDA-Public Use
  Company Number: US-ASTRAZENECA-2009UW13671

PATIENT
  Age: 77 Year
  Sex: Male
  Weight: 77.1 kg

DRUGS (8)
  1. CRESTOR [Suspect]
     Indication: BLOOD CHOLESTEROL
     Route: 048
     Dates: start: 20090415, end: 20090527
  2. CRESTOR [Suspect]
     Route: 048
     Dates: start: 20090501
  3. LISINOPRIL [Concomitant]
  4. SPIRONOLACTONE [Concomitant]
  5. LASIX [Concomitant]
  6. NEXIUM [Concomitant]
     Route: 048
  7. CARVEDILOL [Concomitant]
  8. ASPIRIN [Concomitant]

REACTIONS (1)
  - BACK PAIN [None]
